FAERS Safety Report 7265377-0 (Version None)
Quarter: 2011Q1

REPORT INFORMATION
  Report Type: 
  Country: None (occurrence: None)
  Receive Date: 20110131
  Receipt Date: 20110117
  Transmission Date: 20110831
  Serious: Yes (Other)
  Sender: FDA-Public Use
  Company Number: ES-ROCHE-753758

PATIENT

DRUGS (5)
  1. RABBIT ANTITHYMOCYTE GLOBULIN [Suspect]
     Indication: IMMUNOSUPPRESSION
     Route: 065
  2. AZATHIOPRINE [Suspect]
     Route: 065
  3. SIROLIMUS [Suspect]
     Indication: IMMUNOSUPPRESSION
     Route: 065
  4. DACLIZUMAB [Suspect]
     Indication: IMMUNOSUPPRESSION
     Route: 065
  5. MYCOPHENOLATE MOFETIL [Suspect]
     Route: 065

REACTIONS (9)
  - CYTOMEGALOVIRUS INFECTION [None]
  - ERYTHEMA INFECTIOSUM [None]
  - HERPES SIMPLEX [None]
  - BACTERAEMIA [None]
  - PNEUMONIA [None]
  - URINARY TRACT INFECTION [None]
  - POSTOPERATIVE WOUND INFECTION [None]
  - CANDIDIASIS [None]
  - TUBERCULOSIS [None]
